FAERS Safety Report 9630441 (Version 2)
Quarter: 2013Q4

REPORT INFORMATION
  Report Type: Spontaneous
  Country: US (occurrence: US)
  Receive Date: 20131018
  Receipt Date: 20131112
  Transmission Date: 20140711
  Serious: Yes (Hospitalization)
  Sender: FDA-Public Use
  Company Number: US-BIOGENIDEC-2013BI097967

PATIENT
  Age: 56 Year
  Sex: Female

DRUGS (2)
  1. TECFIDERA [Suspect]
     Indication: MULTIPLE SCLEROSIS
     Route: 048
     Dates: start: 20130625, end: 20130701
  2. TECFIDERA [Suspect]
     Indication: MULTIPLE SCLEROSIS
     Route: 048
     Dates: start: 20130702

REACTIONS (6)
  - Hepatic cyst [Not Recovered/Not Resolved]
  - Pneumothorax [Not Recovered/Not Resolved]
  - Adrenal cyst [Not Recovered/Not Resolved]
  - Renal mass [Not Recovered/Not Resolved]
  - Abdominal pain upper [Not Recovered/Not Resolved]
  - Flushing [Not Recovered/Not Resolved]
